FAERS Safety Report 8014421-1 (Version None)
Quarter: 2011Q4

REPORT INFORMATION
  Report Type: 
  Country: None (occurrence: None)
  Receive Date: 20111229
  Receipt Date: 20111221
  Transmission Date: 20120403
  Serious: Yes (Hospitalization, Other)
  Sender: FDA-Public Use
  Company Number: PHHY2011FR111233

PATIENT

DRUGS (1)
  1. FLUOROURACIL [Suspect]
     Dosage: 6400 MG, UNK

REACTIONS (8)
  - SKIN TOXICITY [None]
  - NEUROTOXICITY [None]
  - SOMNOLENCE [None]
  - THROMBOCYTOPENIA [None]
  - CONFUSIONAL STATE [None]
  - DYSARTHRIA [None]
  - NEUTROPENIA [None]
  - MUCOSAL INFLAMMATION [None]
